FAERS Safety Report 25962372 (Version 1)
Quarter: 2025Q4

REPORT INFORMATION
  Report Type: Spontaneous
  Country: EU (occurrence: EU)
  Receive Date: 20251027
  Receipt Date: 20251027
  Transmission Date: 20260118
  Serious: Yes (Disabling, Other)
  Sender: ACCORD
  Company Number: EU-MLMSERVICE-20251008-PI670844-00306-1

PATIENT
  Age: 48 Year
  Sex: Female

DRUGS (2)
  1. TACROLIMUS [Suspect]
     Active Substance: TACROLIMUS
     Indication: Immunosuppressant drug therapy
  2. MYCOPHENOLIC ACID [Concomitant]
     Active Substance: MYCOPHENOLIC ACID
     Indication: Immunosuppressant drug therapy

REACTIONS (2)
  - Thrombotic thrombocytopenic purpura [Recovered/Resolved]
  - Posterior reversible encephalopathy syndrome [Recovered/Resolved]
